FAERS Safety Report 5519268-3 (Version None)
Quarter: 2007Q4

REPORT INFORMATION
  Report Type: 
  Country: None (occurrence: None)
  Receive Date: 20071116
  Receipt Date: 20071109
  Transmission Date: 20080405
  Serious: Yes (Other)
  Sender: FDA-Public Use
  Company Number: AU-AVENTIS-200720396GDDC

PATIENT
  Age: 69 Year
  Sex: Male

DRUGS (8)
  1. ARAVA [Suspect]
     Indication: RHEUMATOID ARTHRITIS
     Route: 048
     Dates: start: 20060330
  2. METHOTREXATE [Concomitant]
     Dosage: DOSE: UNK
  3. FOLIC ACID [Concomitant]
     Dosage: DOSE: UNK
  4. PREDNISOLONE [Concomitant]
     Dosage: DOSE: UNK
  5. UNKNOWN DRUG [Concomitant]
     Dosage: DOSE: UNK
  6. LIPITOR [Concomitant]
     Dosage: DOSE: UNK
  7. ZOTON [Concomitant]
     Dosage: DOSE: UNK
  8. PROGOUT [Concomitant]
     Dosage: DOSE: UNK

REACTIONS (1)
  - OSTEITIS DEFORMANS [None]
